FAERS Safety Report 9067661 (Version 1)
Quarter: 2013Q1

REPORT INFORMATION
  Report Type: Spontaneous
  Country: US (occurrence: US)
  Receive Date: 20130128
  Receipt Date: 20130128
  Transmission Date: 20140127
  Serious: Yes (Disabling, Other)
  Sender: FDA-Public Use
  Company Number: US-PFIZER INC-2013034975

PATIENT
  Sex: Female

DRUGS (8)
  1. LYRICA [Suspect]
     Indication: FIBROMYALGIA
     Dosage: 25 MG, 2X/DAY
     Route: 048
     Dates: start: 20130118, end: 20130119
  2. LYRICA [Suspect]
     Indication: DIABETIC NEUROPATHY
  3. CYMBALTA [Suspect]
     Indication: FIBROMYALGIA
     Dosage: UNK
     Dates: start: 201204, end: 20121024
  4. LAMOTRIGINE [Concomitant]
     Dosage: 20 MG, UNK
  5. LAMOTRIGINE [Concomitant]
     Dosage: 100 MG, UNK
  6. GABAPENTIN [Concomitant]
     Indication: DIABETIC NEUROPATHY
     Dosage: 100 MG, UNK
  7. XANAX [Concomitant]
     Indication: ANXIETY
     Dosage: 10 MG, UNK
  8. METFORMIN [Concomitant]
     Indication: DIABETES MELLITUS
     Dosage: UNK

REACTIONS (5)
  - Abasia [Unknown]
  - Balance disorder [Unknown]
  - Fall [Unknown]
  - Photophobia [Unknown]
  - Dizziness [Unknown]
